FAERS Safety Report 6628678-2 (Version None)
Quarter: 2010Q1

REPORT INFORMATION
  Report Type: 
  Country: None (occurrence: None)
  Receive Date: 20100311
  Receipt Date: 20100301
  Transmission Date: 20100710
  Serious: Yes (Other)
  Sender: FDA-Public Use
  Company Number: FR-JNJFOC-20100301100

PATIENT

DRUGS (2)
  1. REMICADE [Suspect]
     Indication: CROHN'S DISEASE
     Dosage: RECEIVED 2 OR 3 INFUSIONS ON UNSPECIFIED DATES
     Route: 042
  2. IMMUNOSUPPRESSANTS [Suspect]
     Indication: CROHN'S DISEASE

REACTIONS (1)
  - LYMPHOMA [None]
